FAERS Safety Report 4679654-0 (Version None)
Quarter: 2005Q2

REPORT INFORMATION
  Report Type: 
  Country: None (occurrence: None)
  Receive Date: 20050602
  Receipt Date: 20050520
  Transmission Date: 20051028
  Serious: Yes (Other)
  Sender: FDA-Public Use
  Company Number: SE-JNJFOC-20050505721

PATIENT
  Age: 53 Year
  Sex: Female

DRUGS (2)
  1. HALDOL [Suspect]
     Route: 049
     Dates: start: 20040501
  2. SEROQUEL [Suspect]
     Route: 049

REACTIONS (4)
  - BREAST CANCER METASTATIC [None]
  - METASTASES TO BONE [None]
  - METASTASES TO LIVER [None]
  - METASTASES TO PLEURA [None]
